FAERS Safety Report 17712936 (Version 1)
Quarter: 2020Q2

REPORT INFORMATION
  Report Type: Spontaneous
  Country: US (occurrence: US)
  Receive Date: 20200425
  Receipt Date: 20200425
  Transmission Date: 20200714
  Serious: No
  Sender: FDA-Public Use
  Company Number: None

PATIENT
  Age: 66 Year
  Sex: Female

DRUGS (1)
  1. PREVNAR 13 [Suspect]
     Active Substance: PNEUMOCOCCAL 13-VALENT CONJUGATE VACCINE
     Indication: PROPHYLAXIS
     Route: 030
     Dates: start: 20200309

REACTIONS (4)
  - Joint swelling [None]
  - Pyrexia [None]
  - Erythema [None]
  - Arthralgia [None]

NARRATIVE: CASE EVENT DATE: 20200309
